FAERS Safety Report 9198078 (Version 2)
Quarter: 2013Q2

REPORT INFORMATION
  Report Type: Spontaneous
  Country: ES (occurrence: ES)
  Receive Date: 20130329
  Receipt Date: 20130422
  Transmission Date: 20140414
  Serious: Yes (Other)
  Sender: FDA-Public Use
  Company Number: PHHY2013ES029235

PATIENT
  Age: 48 Year
  Sex: Male

DRUGS (3)
  1. RIBAVIRIN SANDOZ [Suspect]
     Indication: HEPATITIS C
     Dosage: 600 MG, PER DAY
     Route: 048
     Dates: start: 20120528, end: 20130222
  2. INCIVO [Concomitant]
     Indication: HEPATITIS C
     Dates: start: 2012
  3. PEGASYS [Concomitant]
     Indication: HEPATITIS C
     Dates: start: 20120528, end: 20130220

REACTIONS (3)
  - Hepatocellular injury [Recovering/Resolving]
  - Rash pruritic [Recovering/Resolving]
  - Malaise [Recovering/Resolving]
